FAERS Safety Report 6239724-2 (Version None)
Quarter: 2009Q2

REPORT INFORMATION
  Report Type: 
  Country: None (occurrence: None)
  Receive Date: 20090619
  Receipt Date: 20090609
  Transmission Date: 20091009
  Serious: No
  Sender: FDA-Public Use
  Company Number: 001006

PATIENT
  Age: 39 Year
  Sex: Male

DRUGS (1)
  1. VIMPAT [Suspect]

REACTIONS (1)
  - DEATH [None]
